FAERS Safety Report 14183848 (Version 2)
Quarter: 2018Q2

REPORT INFORMATION
  Report Type: Spontaneous
  Country: FR (occurrence: FR)
  Receive Date: 20171113
  Receipt Date: 20180504
  Transmission Date: 20180711
  Serious: Yes (Hospitalization, Other)
  Sender: FDA-Public Use
  Company Number: FR-MYLANLABS-2017M1070211

PATIENT
  Age: 20 Year
  Sex: Male
  Weight: 74 kg

DRUGS (9)
  1. ACUPAN [Suspect]
     Active Substance: NEFOPAM HYDROCHLORIDE
     Indication: BACK PAIN
     Dosage: 20 MG, UNK
     Route: 042
     Dates: start: 20171003, end: 20171003
  2. MORPHINE RENAUDIN [Suspect]
     Active Substance: MORPHINE
     Indication: BACK PAIN
     Dosage: 2 MG, UNK
     Route: 042
     Dates: start: 20171002, end: 20171002
  3. VALIUM [Suspect]
     Active Substance: DIAZEPAM
     Indication: BACK PAIN
     Dosage: UNK
     Route: 048
     Dates: start: 20171002, end: 20171002
  4. DAFALGAN [Suspect]
     Active Substance: ACETAMINOPHEN
     Indication: BACK PAIN
     Dosage: 1 G, UNK
     Route: 048
     Dates: start: 20171003, end: 20171003
  5. PRIMPERAN [Suspect]
     Active Substance: METOCLOPRAMIDE HYDROCHLORIDE
     Indication: NAUSEA
     Dosage: 10 MG, QD
     Route: 048
     Dates: start: 20171002, end: 20171003
  6. SKENAN [Suspect]
     Active Substance: MORPHINE SULFATE
     Indication: BACK PAIN
     Dosage: 30 MG, UNK
     Route: 048
     Dates: start: 20171002, end: 20171002
  7. OROZAMUDOL 50 MG, COMPRIM? ORODISPERSIBLE [Suspect]
     Active Substance: TRAMADOL
     Indication: BACK PAIN
     Dosage: 50 MG, QD
     Route: 048
     Dates: start: 20171003, end: 20171003
  8. KETOPROFENE MEDAC [Suspect]
     Active Substance: KETOPROFEN
     Indication: BACK PAIN
     Dosage: 100 MG, UNK
     Route: 042
     Dates: start: 20171002, end: 20171003
  9. PARACETAMOL B. BRAUN [Suspect]
     Active Substance: ACETAMINOPHEN
     Indication: BACK PAIN
     Dosage: 1 G, UNK
     Route: 042
     Dates: start: 20171002, end: 20171002

REACTIONS (1)
  - Pancreatitis acute [Recovered/Resolved]

NARRATIVE: CASE EVENT DATE: 20171004
